FAERS Safety Report 14751976 (Version 1)
Quarter: 2018Q2

REPORT INFORMATION
  Report Type: Report from Study
  Country: NL (occurrence: NL)
  Receive Date: 20180412
  Receipt Date: 20180412
  Transmission Date: 20180711
  Serious: Yes (Other)
  Sender: FDA-Public Use
  Company Number: NL-AUROBINDO-AUR-APL-2018-019700

PATIENT
  Age: 42 Year
  Sex: Male

DRUGS (1)
  1. NAPROXEN. [Suspect]
     Active Substance: NAPROXEN
     Indication: MASTOCYTOSIS
     Dosage: UNK

REACTIONS (4)
  - Erythema [Unknown]
  - Stridor [Unknown]
  - Hypersensitivity [Unknown]
  - Hypotension [Unknown]
